FAERS Safety Report 17535044 (Version 1)
Quarter: 2020Q1

REPORT INFORMATION
  Report Type: Spontaneous
  Country: US (occurrence: US)
  Receive Date: 20200313
  Receipt Date: 20200313
  Transmission Date: 20200409
  Serious: No
  Sender: FDA-Public Use
  Company Number: US-TEVA-2020-US-1197202

PATIENT
  Age: 80 Year
  Sex: Female

DRUGS (4)
  1. HYDRALAZINE HCL [Suspect]
     Active Substance: HYDRALAZINE HYDROCHLORIDE
     Indication: BLOOD PRESSURE MEASUREMENT
     Route: 065
  2. FUROSEMIDE. [Concomitant]
     Active Substance: FUROSEMIDE
  3. DOXAZOSIN APOTEX [Concomitant]
     Indication: BLOOD PRESSURE MANAGEMENT
  4. LOSARTAN. [Concomitant]
     Active Substance: LOSARTAN

REACTIONS (6)
  - Ocular discomfort [Unknown]
  - Cough [Unknown]
  - Therapeutic product effect decreased [Unknown]
  - Swelling of eyelid [Unknown]
  - Increased viscosity of upper respiratory secretion [Unknown]
  - Product substitution issue [Unknown]
